FAERS Safety Report 5718150-6 (Version None)
Quarter: 2008Q2

REPORT INFORMATION
  Report Type: 
  Country: None (occurrence: None)
  Receive Date: 20080425
  Receipt Date: 20080422
  Transmission Date: 20081010
  Serious: Yes (Life-Threatening)
  Sender: FDA-Public Use
  Company Number: JP-ASTRAZENECA-2005AP05074

PATIENT
  Age: 28412 Day
  Sex: Male

DRUGS (11)
  1. ZOLADEX [Suspect]
     Indication: PROSTATE CANCER
     Route: 058
     Dates: start: 20050914, end: 20050914
  2. WARFARIN SODIUM [Suspect]
     Indication: THROMBOSIS
     Route: 048
     Dates: end: 20050917
  3. ZOLADEX [Concomitant]
     Dosage: CHANGED TO 10.8 MG
     Route: 058
     Dates: start: 20050615, end: 20050913
  4. CASODEX [Concomitant]
     Indication: PROSTATE CANCER
     Route: 048
     Dates: start: 20050615
  5. HALFDIGOXIN [Concomitant]
     Indication: ATRIAL FIBRILLATION
     Route: 048
  6. LASIX [Concomitant]
     Indication: CARDIAC FAILURE
     Route: 048
  7. GASTER D [Concomitant]
     Indication: GASTRITIS
     Route: 048
  8. HARNAL [Concomitant]
     Indication: BENIGN PROSTATIC HYPERPLASIA
     Route: 048
  9. ZYRTEC [Concomitant]
     Indication: URTICARIA
     Route: 048
  10. LENDORMIN [Concomitant]
     Indication: INSOMNIA
     Route: 048
  11. DOGMATYL [Concomitant]
     Indication: GASTRIC ULCER
     Route: 048

REACTIONS (1)
  - INJECTION SITE HAEMATOMA [None]
